FAERS Safety Report 8695280 (Version 18)
Quarter: 2016Q4

REPORT INFORMATION
  Report Type: Spontaneous
  Country: US (occurrence: US)
  Receive Date: 20120731
  Receipt Date: 20161012
  Transmission Date: 20170207
  Serious: Yes (Other)
  Sender: FDA-Public Use
  Company Number: US-PFIZER INC-2012182733

PATIENT
  Age: 50 Year
  Sex: Male
  Weight: 80.29 kg

DRUGS (26)
  1. ATENOLOL. [Concomitant]
     Active Substance: ATENOLOL
     Indication: PALPITATIONS
     Dosage: 10 MG ONE TABLET BY MOUTH IN THE MORNING AND ONE TABLET AT NIGHT
     Route: 048
  2. GEODON [Suspect]
     Active Substance: ZIPRASIDONE HYDROCHLORIDE\ZIPRASIDONE MESYLATE
     Indication: MOOD SWINGS
     Dosage: UNK
     Route: 030
     Dates: start: 2004
  3. RISPERDAL [Suspect]
     Active Substance: RISPERIDONE
     Indication: MOOD ALTERED
  4. GEODON [Suspect]
     Active Substance: ZIPRASIDONE HYDROCHLORIDE\ZIPRASIDONE MESYLATE
     Indication: MOOD ALTERED
     Dosage: UNK
     Route: 048
     Dates: start: 2004
  5. RISPERDAL [Suspect]
     Active Substance: RISPERIDONE
     Indication: MUSCLE RELAXANT THERAPY
     Dosage: 37.5 MG, UNK
  6. VALPROIC ACID. [Suspect]
     Active Substance: VALPROIC ACID
     Dosage: 70 MG, 3X/DAY
  7. PROLIXIN [Concomitant]
     Active Substance: FLUPHENAZINE HYDROCHLORIDE
     Dosage: UNK
  8. RISPERIDONE. [Concomitant]
     Active Substance: RISPERIDONE
     Indication: MUSCLE RELAXANT THERAPY
     Dosage: UNK
  9. VALPROIC ACID. [Suspect]
     Active Substance: VALPROIC ACID
     Indication: SLEEP DISORDER
     Dosage: 21 MG, 2X/DAY (7 MG, THREE IN THE MORNING AND THREE AT NIGHT)
     Dates: start: 2002
  10. VALPROIC ACID. [Suspect]
     Active Substance: VALPROIC ACID
     Indication: MOOD SWINGS
     Dosage: 40 MG SEVEN OF THEM EACH
  11. GEODON [Suspect]
     Active Substance: ZIPRASIDONE HYDROCHLORIDE\ZIPRASIDONE MESYLATE
     Indication: MUSCLE RELAXANT THERAPY
     Dosage: 80 MG, 2X/DAY
     Route: 048
     Dates: start: 2011
  12. VALPROIC ACID. [Suspect]
     Active Substance: VALPROIC ACID
     Indication: NERVOUSNESS
     Dosage: 7 MG, 2X/DAY
     Dates: start: 2005
  13. PROLIXIN [Concomitant]
     Active Substance: FLUPHENAZINE HYDROCHLORIDE
     Indication: MOOD SWINGS
     Dosage: 37.5 MG, WEEKLY
     Route: 030
     Dates: start: 1973, end: 2007
  14. GEODON [Suspect]
     Active Substance: ZIPRASIDONE HYDROCHLORIDE\ZIPRASIDONE MESYLATE
     Dosage: 3 MG, 2X/DAY
     Route: 030
     Dates: start: 20070824, end: 2011
  15. GEODON [Suspect]
     Active Substance: ZIPRASIDONE HYDROCHLORIDE\ZIPRASIDONE MESYLATE
     Indication: DISTURBANCE IN ATTENTION
     Dosage: 4 MG, 2X/DAY
     Route: 048
     Dates: start: 2009
  16. GEODON [Suspect]
     Active Substance: ZIPRASIDONE HYDROCHLORIDE\ZIPRASIDONE MESYLATE
     Dosage: 70MG, THREE TABLETS TWICE A DAY
     Route: 048
     Dates: start: 2007, end: 2013
  17. VALPROIC ACID. [Suspect]
     Active Substance: VALPROIC ACID
     Indication: APPETITE DISORDER
     Dosage: 15 MG, 2X/DAY (ONCE IN MORNING AND ONE AT NIGHT)
  18. ZYPREXA [Suspect]
     Active Substance: OLANZAPINE
     Dosage: UNK
  19. ATENOLOL. [Concomitant]
     Active Substance: ATENOLOL
     Indication: HYPERTENSION
     Dosage: 3 MG, 2X/DAY
     Route: 048
  20. GEODON [Suspect]
     Active Substance: ZIPRASIDONE HYDROCHLORIDE\ZIPRASIDONE MESYLATE
     Dosage: 420 MG, 2X/DAY (70 MG CAPSULE SIX EVERY MORNING AND SIX EVERY NIGHT)
     Route: 048
     Dates: start: 1997, end: 2015
  21. VALPROIC ACID. [Suspect]
     Active Substance: VALPROIC ACID
     Indication: WEIGHT INCREASED
     Dosage: 10 MG WHITE GEL CAPSULES, SIX CAPSULES TWICE A DAY
     Dates: start: 2009
  22. EFFEXOR [Suspect]
     Active Substance: VENLAFAXINE HYDROCHLORIDE
     Dosage: 80 MG, 2X/DAY
     Dates: start: 2009
  23. RISPERDAL [Suspect]
     Active Substance: RISPERIDONE
     Indication: MUSCLE RELAXANT THERAPY
     Dosage: 37.5 MG, ONCE A WEEK
     Route: 030
     Dates: start: 2004, end: 201601
  24. RISPERDAL [Suspect]
     Active Substance: RISPERIDONE
     Indication: MOOD ALTERED
  25. COGENTIN [Suspect]
     Active Substance: BENZTROPINE MESYLATE
     Dosage: UNK
  26. DEPAKOTE [Suspect]
     Active Substance: DIVALPROEX SODIUM
     Indication: MUSCLE RELAXANT THERAPY
     Dosage: 420 MG, 2X/DAY (70 MG, SIX CAPSULES IN THE MORNING AND SIX CAPSULES AT NIGHT)
     Dates: start: 2004

REACTIONS (26)
  - Diabetes mellitus [Unknown]
  - Palpitations [Not Recovered/Not Resolved]
  - Vision blurred [Not Recovered/Not Resolved]
  - Dizziness [Unknown]
  - Semen volume decreased [Unknown]
  - Erectile dysfunction [Recovered/Resolved]
  - Gynaecomastia [Not Recovered/Not Resolved]
  - Bladder disorder [Unknown]
  - Hypersomnia [Recovered/Resolved]
  - Sluggishness [Unknown]
  - Hip deformity [Not Recovered/Not Resolved]
  - Vocal cord disorder [Not Recovered/Not Resolved]
  - Somnolence [Unknown]
  - Blood testosterone abnormal [Not Recovered/Not Resolved]
  - Testicular disorder [Recovered/Resolved]
  - Overdose [Unknown]
  - Drug ineffective [Unknown]
  - Spinal disorder [Recovered/Resolved]
  - Abnormal behaviour [Unknown]
  - Hernia [Recovered/Resolved]
  - Weight increased [Recovering/Resolving]
  - Speech disorder [Unknown]
  - Dry mouth [Recovered/Resolved]
  - Hypertension [Not Recovered/Not Resolved]
  - Mass [Unknown]
  - Anorgasmia [Unknown]

NARRATIVE: CASE EVENT DATE: 1997
